FAERS Safety Report 5001712-1 (Version None)
Quarter: 2006Q2

REPORT INFORMATION
  Report Type: 
  Country: None (occurrence: None)
  Receive Date: 20060512
  Receipt Date: 20060512
  Transmission Date: 20061013
  Serious: No
  Sender: FDA-Public Use
  Company Number: None

PATIENT
  Age: 61 Year
  Sex: Male
  Weight: 70.3075 kg

DRUGS (8)
  1. AVELOX [Suspect]
     Indication: LOBAR PNEUMONIA
     Dosage: 400MG, QD, IV
     Route: 042
     Dates: start: 20060503
  2. AVELOX [Suspect]
     Indication: LOBAR PNEUMONIA
     Dosage: 400MG, QD, IV
     Route: 042
     Dates: start: 20060504
  3. AVELOX [Suspect]
     Indication: LOBAR PNEUMONIA
     Dosage: 400MG, QD, IV
     Route: 042
     Dates: start: 20060505
  4. AVELOX [Suspect]
     Indication: LOBAR PNEUMONIA
     Dosage: 400MG, QD, IV
     Route: 042
     Dates: start: 20060506
  5. TYLENOL (GELTAB) [Concomitant]
  6. ROCEPHIN [Concomitant]
  7. AZTHROMYCIN [Concomitant]
  8. ZITHROMAX [Concomitant]

REACTIONS (1)
  - LIVER FUNCTION TEST ABNORMAL [None]
